FAERS Safety Report 8894219 (Version 1)
Quarter: 2012Q4

REPORT INFORMATION
  Report Type: 
  Country: US (occurrence: US)
  Receive Date: 20121107
  Receipt Date: 20121107
  Transmission Date: 20130627
  Serious: Yes (Other)
  Sender: FDA-Public Use
  Company Number: US-AMGEN-USASP2011060305

PATIENT
  Age: 59 Year
  Sex: Female

DRUGS (1)
  1. ENBREL [Suspect]
     Indication: RHEUMATOID ARTHRITIS
     Dosage: 25 mg, 2 times/wk
     Dates: start: 20040101

REACTIONS (4)
  - Pneumonia [Recovered/Resolved]
  - Upper respiratory tract infection [Not Recovered/Not Resolved]
  - Nervousness [Not Recovered/Not Resolved]
  - Myalgia [Not Recovered/Not Resolved]
